FAERS Safety Report 24578344 (Version 1)
Quarter: 2024Q4

REPORT INFORMATION
  Report Type: Spontaneous
  Country: CO (occurrence: CO)
  Receive Date: 20241105
  Receipt Date: 20241105
  Transmission Date: 20250115
  Serious: Yes (Other)
  Sender: NOVO NORDISK
  Company Number: CO-NOVOPROD-1308593

PATIENT
  Age: 87 Year
  Sex: Male
  Weight: 59 kg

DRUGS (6)
  1. RYBELSUS [Suspect]
     Active Substance: SEMAGLUTIDE
     Indication: Type 2 diabetes mellitus
     Dosage: 7 MG, QD
     Route: 048
     Dates: start: 20230601
  2. MIRABEGRON [Concomitant]
     Active Substance: MIRABEGRON
     Indication: Urinary incontinence
     Dosage: 1 TABLET, QD
     Route: 048
  3. ASPIRIN [Concomitant]
     Active Substance: ASPIRIN
     Dosage: 1 TABLET, QD
     Route: 048
     Dates: start: 2016
  4. OMEPRAZOLE [Concomitant]
     Active Substance: OMEPRAZOLE
     Dosage: 1 TABLET, QD
     Route: 048
     Dates: start: 2016
  5. ATORVASTATIN [Concomitant]
     Active Substance: ATORVASTATIN
     Dosage: 1 TABLET, QD
     Route: 048
  6. LEVOTHYROXINE [Concomitant]
     Active Substance: LEVOTHYROXINE
     Indication: Hypothyroidism
     Dosage: 1 TABLET, QD
     Route: 048

REACTIONS (1)
  - Dementia Alzheimer^s type [Not Recovered/Not Resolved]

NARRATIVE: CASE EVENT DATE: 20240101
